FAERS Safety Report 6060102-3 (Version None)
Quarter: 2009Q1

REPORT INFORMATION
  Report Type: 
  Country: None (occurrence: None)
  Receive Date: 20090128
  Receipt Date: 20090119
  Transmission Date: 20090719
  Serious: Yes (Hospitalization)
  Sender: FDA-Public Use
  Company Number: 2009-189883-NL

PATIENT
  Sex: Female

DRUGS (1)
  1. NUVARING [Suspect]
     Indication: MENSTRUAL CYCLE MANAGEMENT
     Dosage: DF
     Dates: start: 20080101

REACTIONS (1)
  - UTERINE LEIOMYOMA [None]
